FAERS Safety Report 19511447 (Version 5)
Quarter: 2021Q4

REPORT INFORMATION
  Report Type: Report from Study
  Country: BE (occurrence: BE)
  Receive Date: 20210709
  Receipt Date: 20211022
  Transmission Date: 20220303
  Serious: Yes (Hospitalization, Other)
  Sender: FDA-Public Use
  Company Number: BE-JNJFOC-20210650464

PATIENT
  Age: 61 Year
  Sex: Male
  Weight: 73.6 kg

DRUGS (21)
  1. BORTEZOMIB [Suspect]
     Active Substance: BORTEZOMIB
     Indication: Plasma cell myeloma
     Dosage: 2.4 MILLIGRAM
     Route: 065
     Dates: start: 20210525
  2. TECLISTAMAB [Suspect]
     Active Substance: TECLISTAMAB
     Indication: Plasma cell myeloma
     Dosage: 720 MICROGRAM/KILOGRAM
     Route: 065
     Dates: start: 20210526
  3. DARATUMUMAB [Concomitant]
     Active Substance: DARATUMUMAB
     Indication: Plasma cell myeloma
     Dosage: 1800 MILLIGRAM
     Route: 058
     Dates: start: 20210525
  4. LENALIDOMIDE [Concomitant]
     Active Substance: LENALIDOMIDE
     Indication: Plasma cell myeloma
     Dosage: 25 MILLIGRAM
     Route: 065
     Dates: start: 20210615
  5. DIFLUCAN [Concomitant]
     Active Substance: FLUCONAZOLE
     Indication: Fungal infection
     Dosage: 200 MILLIGRAM, QD
     Route: 048
     Dates: start: 20210525
  6. ACYCLOVIR [Concomitant]
     Active Substance: ACYCLOVIR
     Indication: Herpes simplex
     Dosage: 800 MILLIGRAM, QD
     Route: 048
     Dates: start: 20210525
  7. ALLOPURINOL [Concomitant]
     Active Substance: ALLOPURINOL
     Indication: Prophylaxis
     Dosage: 300 MILLIGRAM, QD
     Route: 048
     Dates: start: 20210525
  8. LACTULOSE [Concomitant]
     Active Substance: LACTULOSE
     Indication: Constipation
     Dosage: 3.33 GRAM, QD
     Route: 048
     Dates: start: 20210530
  9. POLYETHYLENE GLYCOL 3350\POTASSIUM CHLORIDE\SODIUM BICARBONATE\SODIUM [Concomitant]
     Active Substance: POLYETHYLENE GLYCOL 3350\POTASSIUM CHLORIDE\SODIUM BICARBONATE\SODIUM CHLORIDE
     Indication: Constipation
     Dosage: UNK, QD
     Route: 048
     Dates: start: 20210602
  10. ASPIRIN [Concomitant]
     Active Substance: ASPIRIN
     Indication: Blood disorder
     Dosage: 80 MILLIGRAM, QD
     Route: 048
     Dates: start: 20210615, end: 20210803
  11. TRAMADOL [Concomitant]
     Active Substance: TRAMADOL
     Indication: Musculoskeletal chest pain
     Dosage: 50 MILLIGRAM, QD
     Route: 048
     Dates: start: 20210701, end: 20210701
  12. TRAMADOL [Concomitant]
     Active Substance: TRAMADOL
     Indication: Respiratory tract infection
  13. ACETAMINOPHEN [Concomitant]
     Active Substance: ACETAMINOPHEN
     Indication: Musculoskeletal chest pain
     Dosage: 1 GRAM, QD
     Route: 048
     Dates: start: 20210618, end: 20210622
  14. ACETAMINOPHEN [Concomitant]
     Active Substance: ACETAMINOPHEN
     Indication: Pyrexia
     Dosage: 1 GRAM, QD
     Route: 048
     Dates: start: 20210701, end: 20210701
  15. ACETAMINOPHEN [Concomitant]
     Active Substance: ACETAMINOPHEN
     Indication: Respiratory tract infection
  16. MOXIFLOXACIN [Concomitant]
     Active Substance: MOXIFLOXACIN
     Indication: Dysphonia
     Dosage: 400 MILLIGRAM, QD
     Route: 048
     Dates: start: 20210712
  17. MOXIFLOXACIN [Concomitant]
     Active Substance: MOXIFLOXACIN
     Indication: Rhinorrhoea
  18. MOXIFLOXACIN [Concomitant]
     Active Substance: MOXIFLOXACIN
     Indication: Respiratory tract infection
  19. PRIVIGEN [Concomitant]
     Active Substance: HUMAN IMMUNOGLOBULIN G
     Indication: Prophylaxis
     Dosage: UNK, MONTHLY
     Route: 042
  20. PRIVIGEN [Concomitant]
     Active Substance: HUMAN IMMUNOGLOBULIN G
     Indication: Hypogammaglobulinaemia
  21. Amoxicillin clavulanic acid kabi [Concomitant]
     Indication: Pyrexia
     Dosage: 875 MILLIGRAM, TID
     Route: 048
     Dates: start: 20210618

REACTIONS (1)
  - Cytokine release syndrome [Recovering/Resolving]

NARRATIVE: CASE EVENT DATE: 20210618
